FAERS Safety Report 8973887 (Version 1)
Quarter: 2012Q4

REPORT INFORMATION
  Report Type: 
  Country: US (occurrence: US)
  Receive Date: 20121218
  Receipt Date: 20121218
  Transmission Date: 20130627
  Serious: Yes (Other)
  Sender: FDA-Public Use
  Company Number: US-GLAXOSMITHKLINE-A1005094A

PATIENT
  Age: 15 Year
  Sex: Male

DRUGS (5)
  1. LAMICTAL [Suspect]
     Indication: BIPOLAR DISORDER
     Dosage: 300MG In the morning
     Route: 048
     Dates: start: 20101016
  2. SEROQUEL [Concomitant]
  3. TRAZODONE [Concomitant]
  4. VYVANSE [Concomitant]
  5. ADDERALL XR [Concomitant]

REACTIONS (4)
  - Foreign body [Not Recovered/Not Resolved]
  - Product taste abnormal [Not Recovered/Not Resolved]
  - Abnormal behaviour [Not Recovered/Not Resolved]
  - Treatment noncompliance [Not Recovered/Not Resolved]
